FAERS Safety Report 9882179 (Version 3)
Quarter: 2014Q2

REPORT INFORMATION
  Report Type: Spontaneous
  Country: US (occurrence: US)
  Receive Date: 20140207
  Receipt Date: 20140402
  Transmission Date: 20141212
  Serious: No
  Sender: FDA-Public Use
  Company Number: US-TEVA-461235USA

PATIENT
  Age: 55 Year
  Sex: Female

DRUGS (2)
  1. NUVIGIL [Suspect]
     Indication: INSOMNIA
     Dates: start: 2013
  2. NUVIGIL [Suspect]
     Indication: FATIGUE

REACTIONS (5)
  - Abdominal discomfort [Unknown]
  - Drug ineffective [Unknown]
  - Fatigue [Unknown]
  - Fatigue [Unknown]
  - Off label use [Unknown]
